FAERS Safety Report 25320244 (Version 2)
Quarter: 2025Q3

REPORT INFORMATION
  Report Type: Spontaneous
  Country: US (occurrence: US)
  Receive Date: 20250515
  Receipt Date: 20250717
  Transmission Date: 20251020
  Serious: Yes (Other)
  Sender: NOVARTIS
  Company Number: US-002147023-NVSC2025US077519

PATIENT
  Sex: Female

DRUGS (1)
  1. COSENTYX [Suspect]
     Active Substance: SECUKINUMAB
     Indication: Psoriasis
     Dosage: UNK, QMO (300 MG/2 ML)
     Route: 058
     Dates: start: 20241101

REACTIONS (5)
  - Cataract [Not Recovered/Not Resolved]
  - Blindness [Unknown]
  - Astigmatism [Not Recovered/Not Resolved]
  - Pterygium [Not Recovered/Not Resolved]
  - Visual impairment [Unknown]
